FAERS Safety Report 4374503-2 (Version None)
Quarter: 2004Q2

REPORT INFORMATION
  Report Type: 
  Country: None (occurrence: None)
  Receive Date: 20040602
  Receipt Date: 20040223
  Transmission Date: 20050107
  Serious: No
  Sender: FDA-Public Use
  Company Number: 200413309BWH

PATIENT
  Age: 70 Year
  Sex: Male
  Weight: 100.2449 kg

DRUGS (9)
  1. LEVITRA [Suspect]
     Indication: TESTICULAR PAIN
     Dosage: 10 MG, QD; ORAL (SEE IMAGE)
     Route: 048
     Dates: start: 20040212
  2. GLUCOVANCE [Concomitant]
  3. ECOTRIN [Concomitant]
  4. PLETAL [Concomitant]
  5. VERAPAMIL [Concomitant]
  6. ACTOS [Concomitant]
  7. TRICOR [Concomitant]
  8. ULTRACET [Concomitant]
  9. VIAGRA [Concomitant]

REACTIONS (2)
  - ERECTILE DYSFUNCTION [None]
  - TESTICULAR PAIN [None]
